FAERS Safety Report 8319855-3 (Version None)
Quarter: 2012Q2

REPORT INFORMATION
  Report Type: 
  Country: None (occurrence: None)
  Receive Date: 20120427
  Receipt Date: 20120424
  Transmission Date: 20120825
  Serious: No
  Sender: FDA-Public Use
  Company Number: US-PFIZER INC-2012069616

PATIENT
  Sex: Female

DRUGS (9)
  1. ZOLOFT [Concomitant]
  2. CELEBREX [Suspect]
     Dosage: 200 MG BID
  3. VALIUM [Concomitant]
  4. LYRICA [Suspect]
     Dosage: 100 MG BID
  5. LORTAB [Concomitant]
  6. SOMA [Concomitant]
  7. PRILOSEC [Concomitant]
  8. FISH OIL [Concomitant]
  9. LEVOTHYROXINE [Concomitant]

REACTIONS (1)
  - PAIN [None]
